FAERS Safety Report 8410337-7 (Version None)
Quarter: 2012Q2

REPORT INFORMATION
  Report Type: 
  Country: None (occurrence: None)
  Receive Date: 20120605
  Receipt Date: 20120524
  Transmission Date: 20120825
  Serious: Yes (Other)
  Sender: FDA-Public Use
  Company Number: JP-AMGEN-JPNSP2012013580

PATIENT
  Age: 52 Year
  Sex: Female

DRUGS (4)
  1. REMICADE [Concomitant]
     Dosage: UNK
  2. ENBREL [Suspect]
     Indication: RHEUMATOID ARTHRITIS
     Dosage: 25 MG, 2X/WEEK
     Route: 058
  3. PREDNISOLONE [Concomitant]
     Dosage: 10 MG/DAY
     Route: 048
  4. METHOTREXATE SODIUM [Concomitant]
     Dosage: UNK

REACTIONS (1)
  - LYMPHOMA [None]
